FAERS Safety Report 18399916 (Version 2)
Quarter: 2020Q4

REPORT INFORMATION
  Report Type: Spontaneous
  Country: US (occurrence: US)
  Receive Date: 20201019
  Receipt Date: 20201117
  Transmission Date: 20210114
  Serious: Yes (Hospitalization)
  Sender: FDA-Public Use
  Company Number: US-PFIZER INC-2020403324

PATIENT
  Age: 88 Year
  Sex: Male
  Weight: 95.24 kg

DRUGS (2)
  1. ASPIRIN [ACETYLSALICYLIC ACID] [Concomitant]
     Active Substance: ASPIRIN
     Dosage: UNK, 3 TIMES A WEEK
  2. INLYTA [Suspect]
     Active Substance: AXITINIB
     Indication: RENAL CELL CARCINOMA
     Dosage: 5 MG, 2X/DAY
     Route: 048
     Dates: start: 20200930

REACTIONS (5)
  - Hypertension [Unknown]
  - Nausea [Unknown]
  - Laboratory test abnormal [Unknown]
  - Blood glucose increased [Unknown]
  - Epistaxis [Unknown]
